FAERS Safety Report 22057719 (Version 1)
Quarter: 2023Q1

REPORT INFORMATION
  Report Type: Spontaneous
  Country: NL (occurrence: NL)
  Receive Date: 20230303
  Receipt Date: 20230303
  Transmission Date: 20230418
  Serious: Yes (Life-Threatening, Hospitalization, Congenital Anomaly)
  Sender: FDA-Public Use
  Company Number: None

PATIENT
  Sex: Female
  Weight: 54.9 kg

DRUGS (1)
  1. TENOFOVIR DISOPROXIL [Suspect]
     Active Substance: TENOFOVIR DISOPROXIL
     Indication: Hepatitis B
     Dosage: 245 MILLIGRAM DAILY; 1X PER DAY 1 PIECE, TENOFOVIR DISOPROXIL TABLET 245MG / BRAND NAME NOT SPECIFIE
     Route: 065
     Dates: start: 20140722, end: 20230120

REACTIONS (2)
  - Renal tubular acidosis [Recovering/Resolving]
  - Fanconi syndrome [Recovering/Resolving]
